FAERS Safety Report 7506542-4 (Version None)
Quarter: 2011Q2

REPORT INFORMATION
  Report Type: 
  Country: None (occurrence: None)
  Receive Date: 20110526
  Receipt Date: 20110524
  Transmission Date: 20111010
  Serious: Yes (Other)
  Sender: FDA-Public Use
  Company Number: GR-MERCK-1105GRC00004

PATIENT
  Age: 46 Year
  Sex: Male
  Weight: 95 kg

DRUGS (2)
  1. VYTORIN [Suspect]
     Indication: HYPERTRIGLYCERIDAEMIA
     Route: 048
     Dates: start: 20090901, end: 20091101
  2. VYTORIN [Suspect]
     Indication: HYPERCHOLESTEROLAEMIA
     Route: 048
     Dates: start: 20090901, end: 20091101

REACTIONS (1)
  - CATARACT [None]
